FAERS Safety Report 21993648 (Version 2)
Quarter: 2023Q1

REPORT INFORMATION
  Report Type: Spontaneous
  Country: DE (occurrence: DE)
  Receive Date: 20230215
  Receipt Date: 20230223
  Transmission Date: 20230418
  Serious: Yes (Other)
  Sender: FDA-Public Use
  Company Number: None

PATIENT
  Age: 67 Year
  Sex: Male
  Weight: 59 kg

DRUGS (2)
  1. ELIQUIS [Suspect]
     Active Substance: APIXABAN
     Indication: Cerebrovascular accident prophylaxis
     Route: 048
     Dates: start: 20221209, end: 20230108
  2. CRATAEGUS LAEVIGATA FLOWERING TOP [Concomitant]
     Active Substance: CRATAEGUS LAEVIGATA FLOWERING TOP
     Indication: Supportive care
     Route: 048
     Dates: start: 2019

REACTIONS (4)
  - Mobility decreased [Not Recovered/Not Resolved]
  - Language disorder [Not Recovered/Not Resolved]
  - Cerebral haemorrhage [Not Recovered/Not Resolved]
  - Basal ganglia haemorrhage [Not Recovered/Not Resolved]

NARRATIVE: CASE EVENT DATE: 20230109
